FAERS Safety Report 16458203 (Version 6)
Quarter: 2019Q4

REPORT INFORMATION
  Report Type: Spontaneous
  Country: TW (occurrence: TW)
  Receive Date: 20190620
  Receipt Date: 20191226
  Transmission Date: 20200122
  Serious: Yes (Other)
  Sender: FDA-Public Use
  Company Number: TW-PFIZER INC-2019097740

PATIENT
  Age: 62 Year
  Sex: Male

DRUGS (4)
  1. SUTENT [Suspect]
     Active Substance: SUNITINIB MALATE
     Dosage: 37.5 MG, CYCLIC (3DF/ QD, 2 WEEKS ON AND 2 WEEK OFF)
     Route: 048
     Dates: start: 20190324, end: 2019
  2. SUTENT [Suspect]
     Active Substance: SUNITINIB MALATE
     Dosage: 50 MG, CYCLIC (4DF/ QD, 2 WEEKS ON AND 2 WEEK OFF)
     Route: 048
     Dates: start: 20190210, end: 2019
  3. SUTENT [Suspect]
     Active Substance: SUNITINIB MALATE
     Indication: RENAL CELL CARCINOMA
     Dosage: 50 MG, CYCLIC (4DF/ QD, 2 WEEKS ON AND 1 WEEK OFF)
     Route: 048
     Dates: start: 20181225
  4. SUTENT [Suspect]
     Active Substance: SUNITINIB MALATE
     Dosage: 37.5 MG, CYCLIC (3DF/ QD, 2 WEEKS ON AND 2 WEEK OFF)
     Route: 048
     Dates: start: 20190713, end: 2019

REACTIONS (9)
  - Pain of skin [Recovered/Resolved]
  - Skin disorder [Recovered/Resolved]
  - Vomiting [Recovering/Resolving]
  - Oedema peripheral [Not Recovered/Not Resolved]
  - Abdominal distension [Recovering/Resolving]
  - Nausea [Recovering/Resolving]
  - Wound infection [Recovered/Resolved]
  - Palmar-plantar erythrodysaesthesia syndrome [Not Recovered/Not Resolved]
  - Decreased appetite [Recovered/Resolved]
